FAERS Safety Report 6738368-3 (Version None)
Quarter: 2010Q2

REPORT INFORMATION
  Report Type: 
  Country: None (occurrence: None)
  Receive Date: 20100524
  Receipt Date: 20100514
  Transmission Date: 20101027
  Serious: Yes (Hospitalization)
  Sender: FDA-Public Use
  Company Number: US-JNJFOC-20100402495

PATIENT
  Sex: Female
  Weight: 83.01 kg

DRUGS (5)
  1. INVEGA SUSTENNA [Suspect]
     Indication: PSYCHOTIC DISORDER
     Route: 030
  2. INVEGA SUSTENNA [Suspect]
     Route: 030
  3. PROZAC [Concomitant]
     Indication: DEPRESSION
  4. FISH OIL [Concomitant]
     Indication: TREMOR
  5. RESTORIL [Concomitant]
     Indication: INSOMNIA

REACTIONS (4)
  - CHOLELITHIASIS [None]
  - DISORIENTATION [None]
  - MUSCULOSKELETAL STIFFNESS [None]
  - PANCREATITIS [None]
